FAERS Safety Report 8886047 (Version 3)
Quarter: 2013Q1

REPORT INFORMATION
  Report Type: Spontaneous
  Country: US (occurrence: US)
  Receive Date: 20121105
  Receipt Date: 20130213
  Transmission Date: 20140127
  Serious: Yes (Other)
  Sender: FDA-Public Use
  Company Number: US-PFIZER INC-2012275396

PATIENT
  Age: 75 Year
  Sex: Male

DRUGS (5)
  1. LYRICA [Suspect]
     Indication: NEUROPATHY PERIPHERAL
     Dosage: UNK, 2X/DAY
  2. LYRICA [Suspect]
     Dosage: 1 DF, DAILY
     Route: 048
  3. LYRICA [Suspect]
     Dosage: TWO TO THREE CAPSULES IN A DAY
     Route: 048
  4. LYRICA [Suspect]
     Dosage: 3 DF, DAILY
     Route: 048
  5. LYRICA [Suspect]
     Dosage: UNK

REACTIONS (3)
  - Arthropathy [Unknown]
  - Somnolence [Unknown]
  - Therapeutic response unexpected [Unknown]
